FAERS Safety Report 16472861 (Version 1)
Quarter: 2019Q2

REPORT INFORMATION
  Report Type: Report from Study
  Country: None (occurrence: US)
  Receive Date: 20190625
  Receipt Date: 20190625
  Transmission Date: 20190711
  Serious: Yes (Other)
  Sender: FDA-Public Use
  Company Number: US-ABBVIE-19K-163-2826984-00

PATIENT
  Age: 31 Year
  Sex: Male

DRUGS (6)
  1. KLONOPIN [Concomitant]
     Active Substance: CLONAZEPAM
     Indication: PRODUCT USED FOR UNKNOWN INDICATION
  2. TEGRETOL [Concomitant]
     Active Substance: CARBAMAZEPINE
     Indication: AFFECTIVE DISORDER
  3. MAVYRET [Suspect]
     Active Substance: GLECAPREVIR\PIBRENTASVIR
     Dosage: WITH FOOD
     Route: 048
     Dates: start: 2019
  4. KEPPRA [Concomitant]
     Active Substance: LEVETIRACETAM
     Indication: PRODUCT USED FOR UNKNOWN INDICATION
  5. MAVYRET [Suspect]
     Active Substance: GLECAPREVIR\PIBRENTASVIR
     Indication: CHRONIC HEPATITIS C
     Dosage: WITH FOOD
     Route: 048
     Dates: start: 201905, end: 2019
  6. SUBOXONE [Concomitant]
     Active Substance: BUPRENORPHINE HYDROCHLORIDE\NALOXONE HYDROCHLORIDE
     Indication: PRODUCT USED FOR UNKNOWN INDICATION

REACTIONS (4)
  - Head injury [Recovered/Resolved]
  - Seizure [Recovered/Resolved]
  - Fall [Recovered/Resolved]
  - Seizure [Recovered/Resolved]

NARRATIVE: CASE EVENT DATE: 2019
